FAERS Safety Report 20369209 (Version 2)
Quarter: 2022Q1

REPORT INFORMATION
  Report Type: Spontaneous
  Country: US (occurrence: US)
  Receive Date: 20220124
  Receipt Date: 20220223
  Transmission Date: 20220424
  Serious: No
  Sender: FDA-Public Use
  Company Number: US-AMGEN-USASP2022007645

PATIENT
  Age: 68 Year
  Sex: Female

DRUGS (2)
  1. MVASI [Suspect]
     Active Substance: BEVACIZUMAB-AWWB
     Indication: Ovarian cancer
     Dosage: 1500 MILLIGRAM
     Route: 065
     Dates: start: 20220116
  2. MVASI [Suspect]
     Active Substance: BEVACIZUMAB-AWWB
     Indication: Fallopian tube cancer

REACTIONS (4)
  - Haematocrit decreased [Unknown]
  - Haemoglobin decreased [Unknown]
  - Anaemia [Unknown]
  - Abdominal pain [Unknown]

NARRATIVE: CASE EVENT DATE: 20220202
